FAERS Safety Report 4742827-2 (Version None)
Quarter: 2005Q3

REPORT INFORMATION
  Report Type: 
  Country: None (occurrence: None)
  Receive Date: 20050811
  Receipt Date: 20050729
  Transmission Date: 20060218
  Serious: Yes (Death, Hospitalization)
  Sender: FDA-Public Use
  Company Number: NL-GLAXOSMITHKLINE-B0389412A

PATIENT
  Age: 6 Year
  Sex: Female

DRUGS (3)
  1. ALBUTEROL SULFATE HFA [Suspect]
     Dosage: 2.5MG SEE DOSAGE TEXT
     Route: 055
  2. IPRATROPIUM BROMIDE [Concomitant]
     Dosage: 250UG SEE DOSAGE TEXT
     Route: 055
  3. FLUTICASONE PROPIONATE [Concomitant]
     Indication: ASTHMA
     Route: 055

REACTIONS (5)
  - ASTHMA [None]
  - DYSPNOEA [None]
  - LUNG HYPERINFLATION [None]
  - PNEUMOTHORAX [None]
  - PRODUCTIVE COUGH [None]
